FAERS Safety Report 5304729-2 (Version None)
Quarter: 2007Q2

REPORT INFORMATION
  Report Type: 
  Country: None (occurrence: None)
  Receive Date: 20070423
  Receipt Date: 20070420
  Transmission Date: 20071010
  Serious: Yes (Hospitalization)
  Sender: FDA-Public Use
  Company Number: GB-BRISTOL-MYERS SQUIBB COMPANY-13261060

PATIENT
  Age: 52 Year
  Sex: Male

DRUGS (6)
  1. DASATINIB [Suspect]
     Indication: LEUKAEMIA
     Dosage: INTERRUPT: 26MAR06
     Route: 048
     Dates: start: 20060112
  2. METOCLOPRAMIDE [Concomitant]
     Dates: start: 20060301
  3. PAROXETINE [Concomitant]
     Dates: start: 19980101
  4. ORAMORPH SR [Concomitant]
     Dates: start: 20040101
  5. PARACETAMOL [Concomitant]
  6. DIHYDROCODEINE BITARTRATE INJ [Concomitant]
     Dates: start: 20000101

REACTIONS (6)
  - ANAEMIA [None]
  - DIARRHOEA [None]
  - NEUTROPENIC SEPSIS [None]
  - PLEURAL EFFUSION [None]
  - URINARY TRACT INFECTION [None]
  - VOMITING [None]
